FAERS Safety Report 5514498-9 (Version None)
Quarter: 2007Q4

REPORT INFORMATION
  Report Type: 
  Country: None (occurrence: None)
  Receive Date: 20071113
  Receipt Date: 20071112
  Transmission Date: 20080405
  Serious: Yes (Disabling)
  Sender: FDA-Public Use
  Company Number: A0693880A

PATIENT
  Age: 49 Year
  Sex: Male

DRUGS (2)
  1. ALLI [Suspect]
     Route: 048
     Dates: start: 20071004, end: 20071007
  2. DIOVAN [Concomitant]

REACTIONS (7)
  - ABDOMINAL PAIN [None]
  - ABDOMINAL PAIN UPPER [None]
  - ANAL HAEMORRHAGE [None]
  - DIARRHOEA [None]
  - MALAISE [None]
  - RECTAL HAEMORRHAGE [None]
  - STOMACH DISCOMFORT [None]
